FAERS Safety Report 25599556 (Version 1)
Quarter: 2025Q3

REPORT INFORMATION
  Report Type: Spontaneous
  Country: CA (occurrence: CA)
  Receive Date: 20250724
  Receipt Date: 20250724
  Transmission Date: 20251020
  Serious: Yes (Other)
  Sender: CELLTRION
  Company Number: CA-CELLTRION INC.-2025CA024172

PATIENT

DRUGS (23)
  1. TRASTUZUMAB [Suspect]
     Active Substance: TRASTUZUMAB
     Indication: Pancreatic carcinoma metastatic
     Route: 065
  2. BEVACIZUMAB [Suspect]
     Active Substance: BEVACIZUMAB
     Indication: Product used for unknown indication
     Route: 042
  3. CAPECITABINE [Suspect]
     Active Substance: CAPECITABINE
     Indication: Pancreatic carcinoma metastatic
     Route: 065
  4. DOCETAXEL [Suspect]
     Active Substance: DOCETAXEL
     Indication: Product used for unknown indication
     Route: 065
  5. GEMCITABINE HYDROCHLORIDE [Suspect]
     Active Substance: GEMCITABINE HYDROCHLORIDE
     Indication: Pancreatic carcinoma metastatic
     Route: 065
  6. KEYTRUDA [Suspect]
     Active Substance: PEMBROLIZUMAB
     Indication: Pancreatic carcinoma metastatic
     Route: 065
  7. LORBRENA [Suspect]
     Active Substance: LORLATINIB
     Indication: Pancreatic carcinoma metastatic
     Route: 065
  8. OXALIPLATIN [Suspect]
     Active Substance: OXALIPLATIN
     Indication: Pancreatic carcinoma metastatic
     Route: 065
  9. PEMETREXED [Suspect]
     Active Substance: PEMETREXED
     Indication: Pancreatic carcinoma metastatic
     Route: 065
  10. ALUNBRIG [Concomitant]
     Active Substance: BRIGATINIB
  11. AMILOMER [Concomitant]
     Active Substance: AMILOMER
  12. CISPLATIN [Concomitant]
     Active Substance: CISPLATIN
     Route: 042
  13. DEMCIZUMAB [Concomitant]
     Active Substance: DEMCIZUMAB
  14. ENTRECTINIB [Concomitant]
     Active Substance: ENTRECTINIB
  15. ETHIODIZED OIL [Concomitant]
     Active Substance: ETHIODIZED OIL
  16. FLUOROURACIL [Concomitant]
     Active Substance: FLUOROURACIL
     Route: 065
  17. LEUCOVORIN [Concomitant]
     Active Substance: LEUCOVORIN\LEUCOVORIN CALCIUM
  18. IRINOTECAN HYDROCHLORIDE [Concomitant]
     Active Substance: IRINOTECAN HYDROCHLORIDE
  19. MITOMYCIN [Concomitant]
     Active Substance: MITOMYCIN
  20. OSIMERTINIB [Concomitant]
     Active Substance: OSIMERTINIB
  21. PACLITAXEL [Concomitant]
     Active Substance: PACLITAXEL
  22. PERTUZUMAB [Concomitant]
     Active Substance: PERTUZUMAB
  23. TRASTUZUMAB DERUXTECAN [Concomitant]
     Active Substance: TRASTUZUMAB DERUXTECAN

REACTIONS (3)
  - Pancytopenia [Unknown]
  - Off label use [Unknown]
  - Intentional product use issue [Unknown]
